FAERS Safety Report 5494325-9 (Version None)
Quarter: 2007Q4

REPORT INFORMATION
  Report Type: 
  Country: None (occurrence: None)
  Receive Date: 20071022
  Receipt Date: 20071010
  Transmission Date: 20080405
  Serious: Yes (Hospitalization)
  Sender: FDA-Public Use
  Company Number: 2007-03402

PATIENT
  Age: 63 Year
  Sex: Male
  Weight: 65 kg

DRUGS (2)
  1. VELCADE [Suspect]
     Indication: MULTIPLE MYELOMA
     Dosage: 0.70 MG/M2, INTRAVENOUS
     Route: 042
     Dates: start: 20070521, end: 20070917
  2. ALKERAN [Suspect]
     Indication: MULTIPLE MYELOMA
     Dosage: 8.00 MG, ORAL
     Route: 048
     Dates: start: 20070521, end: 20070913

REACTIONS (12)
  - ANAEMIA [None]
  - COUGH [None]
  - DISORIENTATION [None]
  - FALL [None]
  - INFECTION [None]
  - INFLAMMATION [None]
  - LEUKOPENIA [None]
  - LUNG INFECTION [None]
  - NERVOUS SYSTEM DISORDER [None]
  - NEUTROPENIA [None]
  - PYREXIA [None]
  - RALES [None]
